FAERS Safety Report 10226295 (Version 2)
Quarter: 2014Q2

REPORT INFORMATION
  Report Type: Spontaneous
  Country: US (occurrence: US)
  Receive Date: 20140609
  Receipt Date: 20140613
  Transmission Date: 20141212
  Serious: Yes (Death, Hospitalization, Other)
  Sender: FDA-Public Use
  Company Number: US-OTSUKA-US-2014-11244

PATIENT
  Age: 63 Year
  Sex: Female
  Weight: 97.51 kg

DRUGS (23)
  1. ABILIFY MAINTENA [Suspect]
     Indication: SCHIZOAFFECTIVE DISORDER BIPOLAR TYPE
     Dosage: 400 MG MILLIGRAM(S), Q4 WEEKS
     Route: 030
     Dates: start: 20130809
  2. ABILIFY MAINTENA [Suspect]
     Dosage: 400 MG MILLIGRAM(S), UNK
     Route: 030
     Dates: start: 20130909
  3. ABILIFY MAINTENA [Suspect]
     Dosage: 400 MG MILLIGRAM(S), UNK
     Route: 030
     Dates: start: 20140120
  4. ABILIFY [Concomitant]
     Indication: SCHIZOAFFECTIVE DISORDER BIPOLAR TYPE
     Dosage: UNK
     Route: 048
  5. DEPAKOTE [Concomitant]
     Indication: PRODUCT USED FOR UNKNOWN INDICATION
     Dosage: UNK
     Route: 048
  6. DEPAKOTE [Concomitant]
     Dosage: 1500 MG MILLIGRAM(S), HS
     Dates: start: 201311
  7. STELAZINE [Concomitant]
     Indication: PRODUCT USED FOR UNKNOWN INDICATION
     Dosage: 10 MG MILLIGRAM(S), QD
     Dates: start: 201311
  8. ATIVAN [Concomitant]
     Indication: ANXIETY
     Dosage: 1 MG MILLIGRAM(S), TID
     Dates: start: 201311
  9. ATIVAN [Concomitant]
     Dosage: 2 MG MILLIGRAM(S), Q4 HOURS AS NEEDED
     Route: 048
  10. NOVOLIN [Concomitant]
     Indication: DIABETES MELLITUS
     Dosage: 15 UNITS Q AM AND Q PM
     Route: 058
  11. ESOMEPRAZOLE MAGNESIUM [Concomitant]
     Indication: PRODUCT USED FOR UNKNOWN INDICATION
     Dosage: 40 MG MILLIGRAM(S), QAM
  12. FUROSEMIDE [Concomitant]
     Indication: PRODUCT USED FOR UNKNOWN INDICATION
     Dosage: 20 MG MILLIGRAM(S), QD
  13. COZAAR [Concomitant]
     Indication: PRODUCT USED FOR UNKNOWN INDICATION
     Dosage: 50 MG MILLIGRAM(S), BID
  14. MELOXICAM [Concomitant]
     Indication: ARTHRITIS
     Dosage: 7.5 MG MILLIGRAM(S), BID
  15. CYMBALTA [Concomitant]
     Indication: DEPRESSION
     Dosage: 30 MG MILLIGRAM(S), QD
     Route: 048
  16. CHRONULAC [Concomitant]
     Indication: CONSTIPATION
     Dosage: 20 G GRAM(S), PRN
     Route: 048
  17. CATAPRESS [Concomitant]
     Indication: HYPERTENSION
     Dosage: 0.1 MG MILLIGRAM(S), EVERY 8 HOURS AS NEEDED
     Route: 048
  18. APRESOLINE [Concomitant]
     Indication: HYPERTENSION
     Dosage: 50 MG MILLIGRAM(S), TID
     Route: 048
  19. TOPROL [Concomitant]
     Indication: HYPERTENSION
     Dosage: 50 MG MILLIGRAM(S), QD
     Route: 048
  20. NORVASC [Concomitant]
     Indication: PRODUCT USED FOR UNKNOWN INDICATION
     Dosage: 10 MG MILLIGRAM(S), QD
     Route: 048
  21. FLUPHENAZINE HYDROCHLORIDE [Concomitant]
     Indication: PSYCHOTIC DISORDER
     Dosage: 15 MG MILLIGRAM(S), BID
     Route: 048
  22. NAMENDA [Concomitant]
     Indication: MEMORY IMPAIRMENT
     Dosage: 10 MG MILLIGRAM(S), BID
     Route: 048
  23. HUMALIN [Concomitant]
     Indication: PRODUCT USED FOR UNKNOWN INDICATION
     Dosage: 15 UNITS Q AM AND Q PM
     Route: 058

REACTIONS (10)
  - Death [Fatal]
  - Transient ischaemic attack [Unknown]
  - Pneumonia [Unknown]
  - Renal disorder [Unknown]
  - Psychotic disorder [Unknown]
  - Depression [Unknown]
  - Anxiety [Unknown]
  - Dementia [Unknown]
  - Off label use [Unknown]
  - Agitation [Recovered/Resolved]
